FAERS Safety Report 7588545-7 (Version None)
Quarter: 2011Q3

REPORT INFORMATION
  Report Type: 
  Country: None (occurrence: None)
  Receive Date: 20110705
  Receipt Date: 20110620
  Transmission Date: 20111222
  Serious: Yes (Hospitalization)
  Sender: FDA-Public Use
  Company Number: FR-CELGENEUS-056-C5013-11062633

PATIENT
  Sex: Male
  Weight: 72 kg

DRUGS (6)
  1. PREDNISONE [Suspect]
     Indication: PROSTATE CANCER
     Dosage: 5 MILLIGRAM
     Route: 065
     Dates: start: 20110606
  2. DOCETAXEL [Suspect]
     Indication: PROSTATE CANCER
     Route: 065
     Dates: start: 20110606
  3. MORPHINE SULFATE [Concomitant]
     Route: 065
  4. FORLAX [Concomitant]
     Route: 065
  5. LENALIDOMIDE [Suspect]
     Indication: PROSTATE CANCER
     Dosage: 25 MILLIGRAM
     Route: 048
     Dates: start: 20110606
  6. SOPHIDONE [Concomitant]
     Route: 065

REACTIONS (1)
  - FEBRILE BONE MARROW APLASIA [None]
